FAERS Safety Report 7811207 (Version 2)
Quarter: 2013Q2

REPORT INFORMATION
  Report Type: Spontaneous
  Country: US (occurrence: US)
  Receive Date: 20110214
  Receipt Date: 20130517
  Transmission Date: 20140414
  Serious: Yes (Hospitalization)
  Sender: FDA-Public Use
  Company Number: US-ASTRAZENECA-2011SE06650

PATIENT
  Age: 77 Year
  Sex: Female

DRUGS (12)
  1. NEXIUM [Suspect]
     Indication: GASTROINTESTINAL DISORDER
     Route: 048
  2. SIMVASTATIN [Concomitant]
     Indication: BLOOD CHOLESTEROL INCREASED
     Route: 048
  3. CITALOPRAM HYDROBROMIDE [Concomitant]
     Route: 048
  4. ASPIRIN EC [Concomitant]
     Route: 048
  5. DICLOFENAC POTASSIUM [Concomitant]
     Route: 048
  6. POLYETHYLENE GLYCOL LIQUID [Concomitant]
  7. FOLIC ACID [Concomitant]
     Route: 048
  8. CALCIUM 500 [Concomitant]
     Route: 048
  9. FIBER THERAPY [Concomitant]
     Route: 048
  10. FISH OIL [Concomitant]
  11. LEVOTHYROXINE SODIUM [Concomitant]
     Route: 048
  12. NORCO [Concomitant]
     Indication: PAIN
     Dosage: EVERY 6 HRS AS REQUIRED
     Route: 048

REACTIONS (6)
  - Fall [Unknown]
  - Hand fracture [Recovered/Resolved]
  - Pain in extremity [Recovered/Resolved]
  - Arthritis [Unknown]
  - Osteoarthritis [Unknown]
  - Arthralgia [Unknown]
